FAERS Safety Report 21463828 (Version 1)
Quarter: 2022Q4

REPORT INFORMATION
  Report Type: Report from Study
  Country: US (occurrence: US)
  Receive Date: 20221017
  Receipt Date: 20221017
  Transmission Date: 20230113
  Serious: Yes (Other)
  Sender: FDA-Public Use
  Company Number: US-ABBVIE-4155911

PATIENT
  Sex: Male

DRUGS (3)
  1. SKYRIZI [Suspect]
     Active Substance: RISANKIZUMAB-RZAA
     Indication: Product used for unknown indication
     Route: 058
  2. Moderna [Concomitant]
     Indication: COVID-19 immunisation
     Dosage: MODERNA 1ST DOSE -  ONCE
     Route: 030
     Dates: start: 20210408, end: 20210408
  3. Moderna [Concomitant]
     Indication: COVID-19 immunisation
     Dosage: MODERNA 2ND DOSE -  ONCE
     Route: 030
     Dates: start: 20210506, end: 20210506

REACTIONS (1)
  - Neoplasm malignant [Recovered/Resolved]
